FAERS Safety Report 20493348 (Version 2)
Quarter: 2022Q2

REPORT INFORMATION
  Report Type: Spontaneous
  Country: ES (occurrence: ES)
  Receive Date: 20220220
  Receipt Date: 20220407
  Transmission Date: 20220721
  Serious: No
  Sender: FDA-Public Use
  Company Number: ES-BEH-2022142258

PATIENT
  Age: 55 Year
  Sex: Male
  Weight: 75 kg

DRUGS (11)
  1. FIBRINOGEN HUMAN [Suspect]
     Active Substance: FIBRINOGEN HUMAN
     Indication: Gastrointestinal haemorrhage
     Dosage: 1 DOSAGE FORM, SINGLE
     Route: 042
     Dates: start: 20211229, end: 20211229
  2. BISOPROLOL [Concomitant]
     Active Substance: BISOPROLOL
  3. ATORVASTATIN [Concomitant]
     Active Substance: ATORVASTATIN
  4. ASPIRIN [Concomitant]
     Active Substance: ASPIRIN
  5. TICAGRELOR [Concomitant]
     Active Substance: TICAGRELOR
  6. HUMAN RED BLOOD CELL [Concomitant]
     Active Substance: HUMAN RED BLOOD CELL
     Dosage: 2 DOSAGE FORM
     Route: 065
  7. HUMAN RED BLOOD CELL [Concomitant]
     Active Substance: HUMAN RED BLOOD CELL
     Dosage: 3 DOSAGE FORM
     Route: 065
  8. OMEPRAZOLE [Concomitant]
     Active Substance: OMEPRAZOLE
  9. SOMATOSTATIN [Concomitant]
     Active Substance: SOMATOSTATIN
  10. NOREPINEPHRINE [Concomitant]
     Active Substance: NOREPINEPHRINE
  11. PLATELETS [Concomitant]
     Active Substance: HUMAN PLATELET, ALLOGENIC

REACTIONS (2)
  - Multiple organ dysfunction syndrome [Fatal]
  - Drug ineffective [Fatal]
